FAERS Safety Report 7982552-8 (Version None)
Quarter: 2011Q4

REPORT INFORMATION
  Report Type: 
  Country: None (occurrence: None)
  Receive Date: 20111215
  Receipt Date: 20111213
  Transmission Date: 20120403
  Serious: Yes (Hospitalization, Congenital Anomaly)
  Sender: FDA-Public Use
  Company Number: US-GLAXOSMITHKLINE-A0859254A

PATIENT
  Sex: Male
  Weight: 2 kg

DRUGS (3)
  1. PAROXETINE HCL [Suspect]
     Indication: PRODUCT USED FOR UNKNOWN INDICATION
     Route: 064
  2. PAXIL [Suspect]
     Indication: PRODUCT USED FOR UNKNOWN INDICATION
     Dosage: 20MG PER DAY
     Route: 064
     Dates: start: 20081001, end: 20090401
  3. MULTI-VITAMINS [Concomitant]
     Route: 064

REACTIONS (6)
  - ATRIAL SEPTAL DEFECT [None]
  - PULMONARY HYPERTENSION [None]
  - CONGENITAL CORONARY ARTERY MALFORMATION [None]
  - PATENT DUCTUS ARTERIOSUS [None]
  - FOETAL EXPOSURE DURING PREGNANCY [None]
  - TRANSPOSITION OF THE GREAT VESSELS [None]
